FAERS Safety Report 7682667-8 (Version None)
Quarter: 2011Q3

REPORT INFORMATION
  Report Type: 
  Country: None (occurrence: None)
  Receive Date: 20110815
  Receipt Date: 20110801
  Transmission Date: 20111222
  Serious: Yes (Hospitalization)
  Sender: FDA-Public Use
  Company Number: US-JNJFOC-20060304590

PATIENT
  Sex: Male
  Weight: 32 kg

DRUGS (6)
  1. ENTERAL NUTRITION [Concomitant]
  2. INFLIXIMAB [Suspect]
     Route: 042
     Dates: start: 20041123
  3. INFLIXIMAB [Suspect]
     Dosage: TOTAL 19 DOSES
     Route: 042
     Dates: start: 20070501
  4. INFLIXIMAB [Suspect]
     Indication: INFLAMMATORY BOWEL DISEASE
     Route: 042
     Dates: start: 20041008
  5. INFLIXIMAB [Suspect]
     Dosage: TOTAL 3 DOSES
     Route: 042
     Dates: start: 20050118
  6. AZATHIOPRINE [Concomitant]

REACTIONS (2)
  - CROHN'S DISEASE [None]
  - INFUSION RELATED REACTION [None]
